FAERS Safety Report 11190289 (Version 1)
Quarter: 2015Q2

REPORT INFORMATION
  Report Type: Spontaneous
  Country: US (occurrence: None)
  Receive Date: 20150612
  Receipt Date: 20150612
  Transmission Date: 20150821
  Serious: No
  Sender: FDA-Public Use
  Company Number: None

PATIENT
  Sex: Female
  Weight: 107.05 kg

DRUGS (3)
  1. CONTRAVE [Suspect]
     Active Substance: BUPROPION HYDROCHLORIDE\NALTREXONE HYDROCHLORIDE
     Indication: WEIGHT LOSS DIET
     Route: 048
     Dates: start: 20150501, end: 20150601
  2. GENERIC DIOVAN [Concomitant]
     Active Substance: VALSARTAN
  3. METFORMIN [Concomitant]
     Active Substance: METFORMIN HYDROCHLORIDE

REACTIONS (8)
  - Anger [None]
  - Therapy cessation [None]
  - Agitation [None]
  - Anxiety [None]
  - Paranoia [None]
  - Constipation [None]
  - Weight fluctuation [None]
  - Abdominal pain upper [None]

NARRATIVE: CASE EVENT DATE: 20150610
